FAERS Safety Report 5347448-9 (Version None)
Quarter: 2007Q2

REPORT INFORMATION
  Report Type: 
  Country: None (occurrence: None)
  Receive Date: 20070604
  Receipt Date: 20070604
  Transmission Date: 20071010
  Serious: Yes (Other)
  Sender: FDA-Public Use
  Company Number: None

PATIENT
  Age: 65 Year
  Sex: Male
  Weight: 78.4723 kg

DRUGS (2)
  1. SIMVASTATIN [Suspect]
     Indication: BLOOD CHOLESTEROL INCREASED
     Dosage: 30 MG DAILY PO
     Route: 048
     Dates: start: 20070115, end: 20070412
  2. CRESTOR [Suspect]
     Indication: BLOOD CHOLESTEROL INCREASED
     Dosage: 5MG DAILY PO
     Route: 048
     Dates: start: 20070416, end: 20070420

REACTIONS (3)
  - ANAEMIA [None]
  - INSOMNIA [None]
  - POLYMYALGIA RHEUMATICA [None]
